FAERS Safety Report 9736068 (Version 1)
Quarter: 2013Q4

REPORT INFORMATION
  Report Type: Spontaneous
  Country: US (occurrence: US)
  Receive Date: 20131206
  Receipt Date: 20131206
  Transmission Date: 20140711
  Serious: Yes (Other)
  Sender: FDA-Public Use
  Company Number: US-GLAXOSMITHKLINE-A1052363A

PATIENT
  Sex: Male

DRUGS (1)
  1. COREG CR [Suspect]
     Indication: CARDIAC FAILURE CHRONIC
     Dosage: 40MG UNKNOWN
     Route: 065
     Dates: start: 20090331

REACTIONS (2)
  - Neoplasm malignant [Unknown]
  - Malaise [Unknown]
